FAERS Safety Report 6693318-3 (Version None)
Quarter: 2010Q2

REPORT INFORMATION
  Report Type: 
  Country: None (occurrence: None)
  Receive Date: 20100421
  Receipt Date: 20100421
  Transmission Date: 20101027
  Serious: Yes (Other)
  Sender: FDA-Public Use
  Company Number: None

PATIENT
  Sex: Female
  Weight: 68.2 kg

DRUGS (2)
  1. FENTANYL TRANSDERMAL SYSTEM 100 MCG/HR MYLAN PHARMACEUTICALS INC. [Suspect]
     Indication: BACK PAIN
     Dosage: APPLY 1 PATCH EVERY 2 DAYS BY TRANSDERMAL ROUTE
     Route: 062
     Dates: start: 20100202
  2. FENTANYL TRANSDERMAL SYSTEM 100 MCG/HR WATSON LABORATORIES, INC. [Suspect]
     Indication: BACK PAIN
     Dosage: APPLY 1 PATCH EVERY 2 DAYS BY TRANSDERMAL ROUTE
     Route: 062
     Dates: start: 20100202

REACTIONS (5)
  - APPLICATION SITE ERYTHEMA [None]
  - APPLICATION SITE INFLAMMATION [None]
  - APPLICATION SITE PRURITUS [None]
  - APPLICATION SITE VESICLES [None]
  - PRODUCT SUBSTITUTION ISSUE [None]
